FAERS Safety Report 14648303 (Version 17)
Quarter: 2018Q4

REPORT INFORMATION
  Report Type: Spontaneous
  Country: FR (occurrence: FR)
  Receive Date: 20180316
  Receipt Date: 20181025
  Transmission Date: 20190204
  Serious: Yes (Death, Other)
  Sender: FDA-Public Use
  Company Number: FR-PFIZER INC-2018106685

PATIENT
  Age: 69 Year
  Sex: Female
  Weight: 35 kg

DRUGS (35)
  1. PANTOPRAZOLE [Suspect]
     Active Substance: PANTOPRAZOLE
     Dosage: UNK
     Route: 041
     Dates: start: 20180126, end: 201802
  2. CIPROFLOXACIN. [Suspect]
     Active Substance: CIPROFLOXACIN
     Dosage: UNK
     Route: 041
     Dates: start: 20180129, end: 201802
  3. EXACYL [Suspect]
     Active Substance: TRANEXAMIC ACID
     Dosage: UNK
     Route: 041
  4. METHOTREXATE. [Suspect]
     Active Substance: METHOTREXATE
     Dosage: UNK
     Dates: start: 20180117
  5. VORAXAZE [Suspect]
     Active Substance: GLUCARPIDASE
     Indication: CHRONIC MYELOMONOCYTIC LEUKAEMIA
     Dosage: UNK
     Route: 041
     Dates: start: 20180118, end: 20180118
  6. TRANEXAMIC ACID. [Suspect]
     Active Substance: TRANEXAMIC ACID
     Dosage: UNK
     Route: 041
     Dates: start: 20180129, end: 201802
  7. HEXTRIL [Suspect]
     Active Substance: HEXETIDINE
     Indication: MUCOSAL INFLAMMATION
     Dosage: UNK
     Route: 002
     Dates: start: 20180125, end: 201802
  8. HEXTRIL [Suspect]
     Active Substance: HEXETIDINE
     Dosage: UNK
     Route: 065
  9. VALACICLOVIR HYDROCHLORIDE [Suspect]
     Active Substance: VALACYCLOVIR HYDROCHLORIDE
     Indication: HERPES SIMPLEX
     Dosage: UNK
     Route: 048
     Dates: start: 20180124, end: 20180126
  10. ESCITALOPRAM [Suspect]
     Active Substance: ESCITALOPRAM OXALATE
     Indication: DEPRESSION
  11. CALCIPARINE [Suspect]
     Active Substance: HEPARIN CALCIUM
     Indication: THROMBOSIS PROPHYLAXIS
     Dosage: UNK
     Route: 058
     Dates: start: 20180124, end: 201802
  12. HEPARIN CALCIUM [Suspect]
     Active Substance: HEPARIN CALCIUM
     Indication: THROMBOSIS PROPHYLAXIS
     Dosage: UNK
     Route: 058
     Dates: start: 20180124, end: 201802
  13. VINCRISTINE SULFATE. [Suspect]
     Active Substance: VINCRISTINE SULFATE
     Indication: CHRONIC MYELOMONOCYTIC LEUKAEMIA
     Dosage: UNK
     Route: 041
     Dates: start: 20180116, end: 20180116
  14. EXACYL [Suspect]
     Active Substance: TRANEXAMIC ACID
     Dosage: UNK
     Route: 041
     Dates: start: 20180129, end: 201802
  15. METHOTREXATE. [Suspect]
     Active Substance: METHOTREXATE
     Indication: CHRONIC MYELOMONOCYTIC LEUKAEMIA
     Dosage: UNK
     Route: 041
     Dates: start: 20180116, end: 20180116
  16. CYCLOPHOSPHAMIDE. [Suspect]
     Active Substance: CYCLOPHOSPHAMIDE
     Indication: CHRONIC MYELOMONOCYTIC LEUKAEMIA
     Dosage: UNK
     Route: 041
     Dates: start: 20180116, end: 20180116
  17. BISOPROLOL FUMARATE. [Suspect]
     Active Substance: BISOPROLOL FUMARATE
     Dosage: UNK
     Route: 048
  18. EPOETIN ALFA [Suspect]
     Active Substance: ERYTHROPOIETIN
     Dosage: UNK
     Route: 058
     Dates: start: 20180124, end: 201802
  19. DOXORUBICIN HCL [Suspect]
     Active Substance: DOXORUBICIN HYDROCHLORIDE
     Indication: CHRONIC MYELOMONOCYTIC LEUKAEMIA
     Dosage: UNK
     Route: 041
     Dates: start: 20180116, end: 20180116
  20. ZARZIO [Suspect]
     Active Substance: FILGRASTIM
     Dosage: UNK
     Route: 058
     Dates: start: 20180124, end: 201802
  21. LIDOCAINE. [Suspect]
     Active Substance: LIDOCAINE
     Indication: MUCOSAL INFLAMMATION
     Dosage: UNK
     Route: 002
     Dates: start: 20180125, end: 201802
  22. ESCITALOPRAM [Suspect]
     Active Substance: ESCITALOPRAM OXALATE
     Indication: DEPRESSION
     Dosage: UNK
     Route: 048
     Dates: start: 20180124, end: 201802
  23. MEROPENEM. [Suspect]
     Active Substance: MEROPENEM
     Dosage: UNK
     Route: 041
     Dates: start: 20180125, end: 201802
  24. EPREX [Suspect]
     Active Substance: ERYTHROPOIETIN
     Dosage: UNK
     Route: 058
     Dates: start: 20180124, end: 201802
  25. FUROSEMIDE. [Suspect]
     Active Substance: FUROSEMIDE
     Indication: RENAL FAILURE
     Dosage: UNK
     Route: 048
     Dates: start: 20180129, end: 20180131
  26. LIDOCAINE. [Suspect]
     Active Substance: LIDOCAINE
     Dosage: UNK
     Route: 002
  27. ONDANSETRON [Suspect]
     Active Substance: ONDANSETRON
     Indication: NAUSEA
     Dosage: UNK
     Route: 048
     Dates: start: 20180124, end: 201802
  28. BACTRIM [Suspect]
     Active Substance: SULFAMETHOXAZOLE\TRIMETHOPRIM
     Dosage: UNK
     Route: 048
     Dates: start: 20180124, end: 20180126
  29. RITUXIMAB. [Suspect]
     Active Substance: RITUXIMAB
     Indication: CHRONIC MYELOMONOCYTIC LEUKAEMIA
     Dosage: UNK
     Route: 041
     Dates: start: 20180116, end: 20180116
  30. BISOPROLOL [Suspect]
     Active Substance: BISOPROLOL
     Dosage: UNK
     Route: 048
     Dates: start: 20180216, end: 20180217
  31. FUNGIZONE [Suspect]
     Active Substance: AMPHOTERICIN B
     Indication: MUCOSAL INFLAMMATION
     Dosage: UNK
     Route: 002
     Dates: start: 20180125, end: 201802
  32. PREDNISONE. [Suspect]
     Active Substance: PREDNISONE
     Indication: CHRONIC MYELOMONOCYTIC LEUKAEMIA
     Dosage: UNK
     Route: 041
     Dates: start: 20180116, end: 20180116
  33. BROMAZEPAM [Suspect]
     Active Substance: BROMAZEPAM
     Dosage: UNK
     Route: 048
     Dates: start: 20180115, end: 20180129
  34. AMPHOTERICIN B. [Suspect]
     Active Substance: AMPHOTERICIN B
     Indication: MUCOSAL INFLAMMATION
     Dosage: UNK
     Route: 002
     Dates: start: 20180125, end: 201802
  35. SULFAMETHOXAZOLE AND TRIMETHOPRIM [Suspect]
     Active Substance: SULFAMETHOXAZOLE\TRIMETHOPRIM
     Dosage: UNK
     Route: 048
     Dates: start: 20180124, end: 20180126

REACTIONS (2)
  - Toxic epidermal necrolysis [Fatal]
  - Product use in unapproved indication [Fatal]

NARRATIVE: CASE EVENT DATE: 20180131
